FAERS Safety Report 13340622 (Version 1)
Quarter: 2017Q1

REPORT INFORMATION
  Report Type: Spontaneous
  Country: US (occurrence: US)
  Receive Date: 20170316
  Receipt Date: 20170316
  Transmission Date: 20170428
  Serious: No
  Sender: FDA-Public Use
  Company Number: US-TEVA-747321ACC

PATIENT
  Sex: Female

DRUGS (1)
  1. COPAXONE [Suspect]
     Active Substance: GLATIRAMER ACETATE
     Indication: MULTIPLE SCLEROSIS
     Dosage: UNKNOWN FORMSTRENGTH

REACTIONS (5)
  - Pain [Unknown]
  - Decreased appetite [Unknown]
  - Fatigue [Unknown]
  - Temperature intolerance [Unknown]
  - Central nervous system lesion [Unknown]
